FAERS Safety Report 6586665-7 (Version None)
Quarter: 2010Q1

REPORT INFORMATION
  Report Type: 
  Country: None (occurrence: None)
  Receive Date: 20100217
  Receipt Date: 20090716
  Transmission Date: 20100710
  Serious: No
  Sender: FDA-Public Use
  Company Number: US-ALLERGAN-0908826US

PATIENT
  Age: 18 Year
  Sex: Female
  Weight: 47.619 kg

DRUGS (1)
  1. BOTOX [Suspect]
     Indication: HYPERHIDROSIS
     Dosage: 100 UNITS, SINGLE
     Route: 023
     Dates: start: 20090611, end: 20090611

REACTIONS (6)
  - BACK PAIN [None]
  - HEADACHE [None]
  - NASAL CONGESTION [None]
  - OROPHARYNGEAL PAIN [None]
  - PAIN [None]
  - PYREXIA [None]
